FAERS Safety Report 8903216 (Version 1)
Quarter: 2012Q4

REPORT INFORMATION
  Report Type: 
  Country: GR (occurrence: GR)
  Receive Date: 20121112
  Receipt Date: 20121112
  Transmission Date: 20130627
  Serious: Yes (Life-Threatening, Hospitalization, Other)
  Sender: FDA-Public Use
  Company Number: GR-BIOGENIDEC-2012BI051070

PATIENT
  Age: 52 Year
  Sex: Female

DRUGS (3)
  1. TYSABRI [Suspect]
     Indication: MULTIPLE SCLEROSIS
     Route: 042
     Dates: start: 201106, end: 20120913
  2. XANAX [Concomitant]
     Route: 048
  3. EFEXOR [Concomitant]
     Route: 048

REACTIONS (2)
  - Necrotising fasciitis [Recovered/Resolved]
  - Staphylococcal infection [Recovered/Resolved]
